FAERS Safety Report 12905380 (Version 3)
Quarter: 2016Q4

REPORT INFORMATION
  Report Type: Spontaneous
  Country: US (occurrence: US)
  Receive Date: 20161103
  Receipt Date: 20161219
  Transmission Date: 20170207
  Serious: Yes (Hospitalization, Other)
  Sender: FDA-Public Use
  Company Number: US-ASTRAZENECA-2016SF14198

PATIENT
  Age: 42 Year
  Sex: Female
  Weight: 86 kg

DRUGS (11)
  1. TOPIRAMATE. [Concomitant]
     Active Substance: TOPIRAMATE
     Indication: MIGRAINE
  2. LISINOPRIL AND HYDROCHLOROTHIAZIDE [Concomitant]
     Active Substance: HYDROCHLOROTHIAZIDE\LISINOPRIL
     Indication: HYPERTENSION
     Dosage: DAILY (HYDROCHLOROTHIAZIDE-12.5 MG, LISINOPRIL-10 MG)
     Route: 048
  3. NEXIUM 24HR [Suspect]
     Active Substance: ESOMEPRAZOLE MAGNESIUM
     Indication: DYSPEPSIA
     Dosage: 1 DF AS NEEDED (OVER A TWO AND A HALF WEEK PERIOD)
     Route: 048
     Dates: start: 20160905
  4. NORTRIPTYLINE [Suspect]
     Active Substance: NORTRIPTYLINE
     Dosage: 50.0MG UNKNOWN
     Route: 048
  5. ZOVIRAX [Suspect]
     Active Substance: ACYCLOVIR
     Dosage: UNKNOWN UNKNOWN
     Route: 048
  6. GLYBURIDE. [Concomitant]
     Active Substance: GLYBURIDE
     Indication: DIABETES MELLITUS
     Route: 048
  7. ATORVASTATIN [Concomitant]
     Active Substance: ATORVASTATIN
     Indication: BLOOD CHOLESTEROL INCREASED
     Route: 048
  8. ZOVIRAX [Suspect]
     Active Substance: ACYCLOVIR
     Dosage: 200.0MG UNKNOWN
     Route: 048
  9. METFORMIN [Concomitant]
     Active Substance: METFORMIN HYDROCHLORIDE
     Indication: DIABETES MELLITUS
     Dosage: 1000 MG, 2X/DAY (ONCE IN MORNING AND ONCE AT BEDTIME)
     Route: 048
  10. LEVEMIR [Concomitant]
     Active Substance: INSULIN DETEMIR
     Indication: DIABETES MELLITUS
     Dosage: 10 IU, (ONCE DAILY OR AS NEEDED)
  11. TEMAZEPAM. [Suspect]
     Active Substance: TEMAZEPAM
     Dosage: 50
     Route: 048

REACTIONS (12)
  - Arthralgia [Unknown]
  - Product commingling [Unknown]
  - Hypercholesterolaemia [Unknown]
  - Dyspnoea [Recovering/Resolving]
  - Pain in extremity [Unknown]
  - Urticaria [Unknown]
  - Diabetes mellitus [Unknown]
  - Wrong drug administered [Unknown]
  - Hypertension [Unknown]
  - Dyspepsia [Unknown]
  - Malaise [Recovering/Resolving]
  - Hypersensitivity [Unknown]

NARRATIVE: CASE EVENT DATE: 2016
